FAERS Safety Report 7564082-0 (Version None)
Quarter: 2011Q2

REPORT INFORMATION
  Report Type: 
  Country: None (occurrence: None)
  Receive Date: 20110622
  Receipt Date: 20110614
  Transmission Date: 20111010
  Serious: Yes (Other)
  Sender: FDA-Public Use
  Company Number: US-US-EMD SERONO, INC.-232229J10USA

PATIENT
  Sex: Female

DRUGS (4)
  1. OMEPRAZOLE [Concomitant]
     Indication: GASTRIC DISORDER
  2. SIMVASTATIN [Concomitant]
     Indication: BLOOD CHOLESTEROL INCREASED
  3. REBIF [Suspect]
     Indication: MULTIPLE SCLEROSIS
     Route: 058
     Dates: start: 20080409
  4. VERPAMIL HCL [Concomitant]
     Indication: HYPERTENSION

REACTIONS (5)
  - INJECTION SITE ERYTHEMA [None]
  - SKIN MASS [None]
  - BACK PAIN [None]
  - MYASTHENIA GRAVIS [None]
  - OSTEOPOROSIS [None]
